FAERS Safety Report 5350844-7 (Version None)
Quarter: 2007Q2

REPORT INFORMATION
  Report Type: 
  Country: None (occurrence: None)
  Receive Date: 20070608
  Receipt Date: 20070605
  Transmission Date: 20071010
  Serious: Yes (Hospitalization)
  Sender: FDA-Public Use
  Company Number: A0654274A

PATIENT
  Age: 81 Year
  Sex: Male

DRUGS (5)
  1. ADVAIR DISKUS 100/50 [Suspect]
     Indication: ASBESTOSIS
     Dosage: 1PUFF TWICE PER DAY
     Route: 055
     Dates: start: 20040601
  2. ASPIRIN [Concomitant]
  3. PEPCID [Concomitant]
  4. TOPROL-XL [Concomitant]
  5. COMBIVIR [Concomitant]

REACTIONS (3)
  - MYOCARDIAL INFARCTION [None]
  - PNEUMONIA [None]
  - PULMONARY OEDEMA [None]
